FAERS Safety Report 10097986 (Version 1)
Quarter: 2014Q2

REPORT INFORMATION
  Report Type: Spontaneous
  Country: US (occurrence: US)
  Receive Date: 20140423
  Receipt Date: 20140423
  Transmission Date: 20141212
  Serious: Yes (Hospitalization)
  Sender: FDA-Public Use
  Company Number: US-ROCHE-1387978

PATIENT
  Age: 70 Year
  Sex: Male

DRUGS (8)
  1. XOLAIR [Suspect]
     Indication: ASTHMA
     Route: 058
     Dates: start: 20130411
  2. XOLAIR [Suspect]
     Route: 058
     Dates: start: 20130509
  3. XOLAIR [Suspect]
     Route: 058
     Dates: start: 20130522
  4. XOLAIR [Suspect]
     Route: 058
     Dates: start: 20130711
  5. SYMBICORT [Concomitant]
  6. PREDNISONE [Concomitant]
  7. SPIRIVA [Concomitant]
  8. VENTOLIN [Concomitant]

REACTIONS (5)
  - Cholelithiasis [Unknown]
  - Wheezing [Unknown]
  - Blood pressure increased [Unknown]
  - Pyrexia [Unknown]
  - Cough [Recovered/Resolved]
